FAERS Safety Report 15933933 (Version 1)
Quarter: 2019Q1

REPORT INFORMATION
  Report Type: Spontaneous
  Country: GB (occurrence: GB)
  Receive Date: 20190207
  Receipt Date: 20190207
  Transmission Date: 20190417
  Serious: Yes (Hospitalization, Other)
  Sender: FDA-Public Use
  Company Number: GB-UNICHEM PHARMACEUTICALS (USA) INC-UCM201901-000036

PATIENT
  Age: 83 Year
  Sex: Female

DRUGS (3)
  1. SIMVASTATIN. [Concomitant]
     Active Substance: SIMVASTATIN
  2. DONEPEZIL. [Suspect]
     Active Substance: DONEPEZIL
  3. BENDROFLUMETHIAZIDE [Concomitant]
     Active Substance: BENDROFLUMETHIAZIDE

REACTIONS (5)
  - Fall [Recovered/Resolved]
  - Electrocardiogram QT prolonged [Recovered/Resolved]
  - Femoral neck fracture [Unknown]
  - Syncope [Recovered/Resolved]
  - Arthralgia [Unknown]
